FAERS Safety Report 6759756-5 (Version None)
Quarter: 2010Q2

REPORT INFORMATION
  Report Type: 
  Country: None (occurrence: None)
  Receive Date: 20100608
  Receipt Date: 20100531
  Transmission Date: 20101027
  Serious: Yes (Other)
  Sender: FDA-Public Use
  Company Number: ZA-JNJFOC-20100600348

PATIENT
  Age: 84 Year
  Sex: Female

DRUGS (2)
  1. REMINYL [Suspect]
     Indication: DRUG USE FOR UNKNOWN INDICATION
     Route: 065
  2. REMINYL CR [Suspect]
     Indication: DRUG USE FOR UNKNOWN INDICATION
     Route: 065

REACTIONS (5)
  - AGITATION [None]
  - CONFUSIONAL STATE [None]
  - DECREASED APPETITE [None]
  - FEELING ABNORMAL [None]
  - MEMORY IMPAIRMENT [None]
